FAERS Safety Report 22219184 (Version 1)
Quarter: 2023Q2

REPORT INFORMATION
  Report Type: Spontaneous
  Country: GB (occurrence: GB)
  Receive Date: 20230417
  Receipt Date: 20230417
  Transmission Date: 20230721
  Serious: Yes (Hospitalization, Other)
  Sender: FDA-Public Use
  Company Number: GB-MHRA-MED-202304131732327100-CDHBW

PATIENT

DRUGS (3)
  1. RIFABUTIN [Suspect]
     Active Substance: RIFABUTIN
  2. ISONIAZID [Suspect]
     Active Substance: ISONIAZID
  3. PYRAZINAMIDE [Suspect]
     Active Substance: PYRAZINAMIDE

REACTIONS (1)
  - Liver injury [Recovering/Resolving]
